FAERS Safety Report 6779271-2 (Version None)
Quarter: 2010Q2

REPORT INFORMATION
  Report Type: 
  Country: None (occurrence: None)
  Receive Date: 20100618
  Receipt Date: 20100609
  Transmission Date: 20101027
  Serious: Yes (Hospitalization)
  Sender: FDA-Public Use
  Company Number: US-JNJFOC-20100603653

PATIENT
  Sex: Female

DRUGS (4)
  1. SIMPONI [Suspect]
     Indication: RHEUMATOID ARTHRITIS
     Route: 058
  2. ANTIHYPERTENSIVES [Concomitant]
     Indication: BLOOD PRESSURE
  3. THYROID  THERAPY [Concomitant]
     Indication: THYROID DISORDER
  4. CRESTOR [Concomitant]
     Indication: CARDIAC DISORDER

REACTIONS (2)
  - PNEUMONIA [None]
  - RENAL FAILURE [None]
